FAERS Safety Report 5803529-4 (Version None)
Quarter: 2008Q3

REPORT INFORMATION
  Report Type: 
  Country: None (occurrence: None)
  Receive Date: 20080708
  Receipt Date: 20080703
  Transmission Date: 20090109
  Serious: Yes (Hospitalization)
  Sender: FDA-Public Use
  Company Number: DE-WYE-G01816908

PATIENT
  Sex: Female
  Weight: 60 kg

DRUGS (2)
  1. VENLAFAXINE HCL [Suspect]
     Dosage: 8 CAPSULES
     Route: 048
     Dates: start: 20080703, end: 20080703
  2. LAMOTRIGINE [Suspect]
     Dosage: 4 TABLETS (400MG)
     Route: 048
     Dates: start: 20080703, end: 20080703

REACTIONS (2)
  - DRUG ABUSE [None]
  - TACHYCARDIA [None]
